FAERS Safety Report 20904880 (Version 1)
Quarter: 2022Q2

REPORT INFORMATION
  Report Type: Spontaneous
  Country: US (occurrence: None)
  Receive Date: 20220601
  Receipt Date: 20220601
  Transmission Date: 20220721
  Serious: No
  Sender: FDA-Public Use
  Company Number: None

PATIENT
  Age: 76 Year
  Sex: Female

DRUGS (1)
  1. PROLIA [Suspect]
     Active Substance: DENOSUMAB
     Indication: Osteoporosis
     Dosage: 60MG OTHER  SUBCUTANEOUS
     Route: 058
     Dates: start: 202112

REACTIONS (2)
  - Blood calcium decreased [None]
  - Arthralgia [None]

NARRATIVE: CASE EVENT DATE: 20220601
